FAERS Safety Report 13664106 (Version 1)
Quarter: 2017Q2

REPORT INFORMATION
  Report Type: Spontaneous
  Country: US (occurrence: US)
  Receive Date: 20170618
  Receipt Date: 20170618
  Transmission Date: 20170830
  Serious: Yes (Disabling)
  Sender: FDA-Public Use
  Company Number: None

PATIENT
  Age: 64 Year
  Sex: Female
  Weight: 53.1 kg

DRUGS (1)
  1. CLONAZEPAM. [Suspect]
     Active Substance: CLONAZEPAM
     Indication: PRODUCT USED FOR UNKNOWN INDICATION
     Dosage: ?          QUANTITY:.25 TABLET(S);?
     Route: 048
     Dates: start: 20120107, end: 20121028

REACTIONS (17)
  - Neuralgia [None]
  - Gingival pain [None]
  - Food allergy [None]
  - Myalgia [None]
  - Vibration test abnormal [None]
  - Depression [None]
  - Fear [None]
  - Headache [None]
  - Suicidal ideation [None]
  - Chemical burn [None]
  - Exercise tolerance decreased [None]
  - Anxiety [None]
  - Feeling abnormal [None]
  - Pain [None]
  - Hyperacusis [None]
  - Hyperaesthesia [None]
  - Abdominal pain upper [None]

NARRATIVE: CASE EVENT DATE: 20120107
